FAERS Safety Report 16773292 (Version 3)
Quarter: 2020Q2

REPORT INFORMATION
  Report Type: Report from Study
  Country: FR (occurrence: FR)
  Receive Date: 20190904
  Receipt Date: 20200520
  Transmission Date: 20200713
  Serious: Yes (Death, Hospitalization, Other)
  Sender: FDA-Public Use
  Company Number: FR-BAUSCH-BL-2019-025145

PATIENT
  Sex: Female
  Weight: 73 kg

DRUGS (25)
  1. REVLIMID [Suspect]
     Active Substance: LENALIDOMIDE
     Route: 048
     Dates: start: 20180607, end: 20180620
  2. LEVOTHYROX [Concomitant]
     Active Substance: LEVOTHYROXINE
     Indication: HYPOTHYROIDISM
     Route: 048
     Dates: start: 20160906
  3. VALACICLOVIR [Concomitant]
     Active Substance: VALACYCLOVIR HYDROCHLORIDE
     Indication: ANTIVIRAL PROPHYLAXIS
     Route: 048
     Dates: start: 20160905
  4. ELIQUIS [Concomitant]
     Active Substance: APIXABAN
     Indication: THROMBOSIS PROPHYLAXIS
     Route: 048
     Dates: start: 20181126
  5. DEXAMETHASONE. [Suspect]
     Active Substance: DEXAMETHASONE
     Route: 048
     Dates: start: 20180627, end: 20180711
  6. IXAZOMIB [Suspect]
     Active Substance: IXAZOMIB
     Indication: PLASMA CELL MYELOMA
     Route: 048
     Dates: start: 20180727
  7. DAFALGAN [Concomitant]
     Active Substance: ACETAMINOPHEN
     Indication: PAIN
     Route: 048
  8. VESICARE [Concomitant]
     Active Substance: SOLIFENACIN SUCCINATE
     Indication: URINARY INCONTINENCE
     Route: 048
     Dates: start: 20191014
  9. REVLIMID [Suspect]
     Active Substance: LENALIDOMIDE
     Indication: PLASMA CELL MYELOMA
     Route: 048
     Dates: start: 20180620, end: 20180711
  10. IXAZOMIB [Suspect]
     Active Substance: IXAZOMIB
     Route: 048
     Dates: start: 20191014, end: 20200108
  11. ACTISKENAN [Concomitant]
     Active Substance: MORPHINE SULFATE
     Indication: PAIN
     Route: 048
  12. DEXAMETHASONE. [Suspect]
     Active Substance: DEXAMETHASONE
     Route: 048
     Dates: start: 20191014, end: 20200108
  13. REVLIMID [Suspect]
     Active Substance: LENALIDOMIDE
     Route: 048
     Dates: start: 20180727, end: 20200108
  14. IXAZOMIB [Suspect]
     Active Substance: IXAZOMIB
     Route: 048
     Dates: start: 20180620, end: 20180711
  15. DEXERYL [Concomitant]
     Indication: DRY SKIN
     Route: 003
  16. SKENAN [Concomitant]
     Active Substance: MORPHINE SULFATE
     Indication: BONE PAIN
     Route: 065
     Dates: start: 20191014
  17. DUPHALAC [Concomitant]
     Active Substance: LACTULOSE
     Indication: CONSTIPATION
     Route: 065
  18. DEXAMETHASONE. [Suspect]
     Active Substance: DEXAMETHASONE
     Indication: PLASMA CELL MYELOMA
     Route: 048
     Dates: start: 20180607, end: 20180620
  19. DEXAMETHASONE. [Suspect]
     Active Substance: DEXAMETHASONE
     Indication: PLASMA CELL MYELOMA
     Route: 048
     Dates: start: 20180620, end: 20180711
  20. PANTOPRAZOLE [Concomitant]
     Active Substance: PANTOPRAZOLE
     Indication: GASTROOESOPHAGEAL REFLUX DISEASE
     Route: 048
     Dates: start: 20160906
  21. PRIMPERAN [Concomitant]
     Active Substance: METOCLOPRAMIDE HYDROCHLORIDE
     Indication: NAUSEA
     Route: 048
  22. SPECIAFOLDINE [Concomitant]
     Active Substance: FOLIC ACID
     Indication: FOLATE DEFICIENCY
     Route: 048
     Dates: start: 20160906
  23. IXAZOMIB [Suspect]
     Active Substance: IXAZOMIB
     Route: 048
     Dates: start: 20180607, end: 20180620
  24. BACTRIM [Concomitant]
     Active Substance: SULFAMETHOXAZOLE\TRIMETHOPRIM
     Indication: ANTIBIOTIC PROPHYLAXIS
     Route: 048
     Dates: start: 20160906
  25. UVEDOSE [Concomitant]
     Active Substance: CHOLECALCIFEROL
     Indication: VITAMIN D DEFICIENCY
     Route: 048

REACTIONS (16)
  - General physical health deterioration [Recovering/Resolving]
  - Chills [Recovered/Resolved with Sequelae]
  - Pain [Recovered/Resolved with Sequelae]
  - Pain in extremity [Recovered/Resolved with Sequelae]
  - Weight decreased [Unknown]
  - Hyperthermia [Recovered/Resolved with Sequelae]
  - Constipation [Recovered/Resolved with Sequelae]
  - Cytopenia [Not Recovered/Not Resolved]
  - Septic shock [Recovered/Resolved with Sequelae]
  - Pancytopenia [Recovering/Resolving]
  - Lymphoedema [Recovered/Resolved]
  - Hypertension [Recovered/Resolved with Sequelae]
  - Neuropathy peripheral [Recovered/Resolved]
  - Plasmacytoma [Fatal]
  - Osteolysis [Not Recovered/Not Resolved]
  - Pneumonia aspiration [Recovered/Resolved with Sequelae]

NARRATIVE: CASE EVENT DATE: 20180625
